FAERS Safety Report 6585622-4 (Version None)
Quarter: 2010Q1

REPORT INFORMATION
  Report Type: 
  Country: None (occurrence: None)
  Receive Date: 20100217
  Receipt Date: 20100205
  Transmission Date: 20100710
  Serious: Yes (Death)
  Sender: FDA-Public Use
  Company Number: JP-BAYER-201010642BYL

PATIENT
  Sex: Male

DRUGS (1)
  1. ADALAT CC [Suspect]
     Indication: HYPERTENSION
     Route: 048

REACTIONS (1)
  - HEPATIC CIRRHOSIS [None]
